FAERS Safety Report 9846491 (Version 1)
Quarter: 2014Q1

REPORT INFORMATION
  Report Type: Spontaneous
  Country: US (occurrence: None)
  Receive Date: 20140122
  Receipt Date: 20140122
  Transmission Date: 20141002
  Serious: Yes (Other)
  Sender: FDA-Public Use
  Company Number: AUR-APL-2014-00459

PATIENT
  Age: 29 Year
  Sex: Male

DRUGS (2)
  1. RISPERIDONE (RISPERIDONE) [Suspect]
     Indication: SCHIZOPHRENIA
     Dosage: 2 MG (1 MG, 2 IN 1 D), ORAL
     Route: 048
  2. RISPERIDONE (RISPERIDONE) [Suspect]
     Indication: SCHIZOPHRENIA
     Route: 030

REACTIONS (4)
  - Sexual dysfunction [None]
  - Breast tenderness [None]
  - Blood prolactin increased [None]
  - Erythema [None]
